FAERS Safety Report 25256840 (Version 1)
Quarter: 2025Q2

REPORT INFORMATION
  Report Type: Spontaneous
  Country: CA (occurrence: CA)
  Receive Date: 20250430
  Receipt Date: 20250430
  Transmission Date: 20250717
  Serious: Yes (Death, Life-Threatening, Hospitalization)
  Sender: FRESENIUS KABI
  Company Number: CA-FreseniusKabi-FK202506144

PATIENT
  Age: 30 Year
  Sex: Female

DRUGS (2)
  1. FENTANYL [Suspect]
     Active Substance: FENTANYL
     Indication: Product used for unknown indication
     Route: 042
  2. METHAMPHETAMINE [Suspect]
     Active Substance: METHAMPHETAMINE
     Indication: Product used for unknown indication
     Route: 042

REACTIONS (8)
  - Cardiac arrest [Fatal]
  - Drug abuse [Fatal]
  - Myocardiac abscess [Fatal]
  - Myocardial infarction [Fatal]
  - Myocardial rupture [Fatal]
  - Pericardial haemorrhage [Fatal]
  - Staphylococcal infection [Fatal]
  - Toxicity to various agents [Fatal]
